FAERS Safety Report 6090904-9 (Version None)
Quarter: 2009Q1

REPORT INFORMATION
  Report Type: 
  Country: None (occurrence: None)
  Receive Date: 20090220
  Receipt Date: 20090209
  Transmission Date: 20090719
  Serious: Yes (Life-Threatening, Hospitalization)
  Sender: FDA-Public Use
  Company Number: ADE2009-0457

PATIENT
  Age: 1 Day
  Sex: Female

DRUGS (5)
  1. ZIDOVUDINE [Suspect]
     Indication: PROPHYLAXIS AGAINST HIV INFECTION
  2. LAMIVUDINE [Suspect]
     Indication: PROPHYLAXIS AGAINST HIV INFECTION
  3. NELFINAVIR [Suspect]
     Indication: HIV INFECTION
  4. AMOXICILLIN AND CLAVULANATE POTASSIUM [Concomitant]
  5. GENTAMICIN [Concomitant]

REACTIONS (5)
  - HYPOTONIA NEONATAL [None]
  - MATERNAL DRUGS AFFECTING FOETUS [None]
  - NECROTISING ENTEROCOLITIS NEONATAL [None]
  - PORTAL VENOUS GAS [None]
  - TRISOMY 21 [None]
